FAERS Safety Report 6412209-6 (Version None)
Quarter: 2009Q4

REPORT INFORMATION
  Report Type: 
  Country: None (occurrence: None)
  Receive Date: 20091023
  Receipt Date: 20091015
  Transmission Date: 20100525
  Serious: Yes (Hospitalization, Other)
  Sender: FDA-Public Use
  Company Number: B0593728A

PATIENT
  Sex: Female
  Weight: 57 kg

DRUGS (3)
  1. VALTREX [Suspect]
     Indication: HERPES ZOSTER
     Dosage: 1000MG THREE TIMES PER DAY
     Route: 048
     Dates: start: 20090908, end: 20090909
  2. VOLTAREN [Suspect]
     Indication: ANALGESIC THERAPY
     Dosage: 37.5MG TWICE PER DAY
     Route: 048
     Dates: start: 20090908, end: 20090909
  3. MUCOSTA [Concomitant]
     Indication: GASTRITIS PROPHYLAXIS
     Dosage: 200MG PER DAY
     Route: 048
     Dates: start: 20090908, end: 20090909

REACTIONS (4)
  - DYSURIA [None]
  - NAUSEA [None]
  - RENAL FAILURE ACUTE [None]
  - URINE OUTPUT DECREASED [None]
